FAERS Safety Report 12056669 (Version 1)
Quarter: 2016Q1

REPORT INFORMATION
  Report Type: Report from Study
  Country: US (occurrence: US)
  Receive Date: 20160209
  Receipt Date: 20160209
  Transmission Date: 20160526
  Serious: Yes (Hospitalization)
  Sender: FDA-Public Use
  Company Number: US-ASTELLAS-2016US004701

PATIENT
  Age: 67 Year

DRUGS (7)
  1. ERLOTINIB [Suspect]
     Active Substance: ERLOTINIB
     Indication: PANCREATIC CARCINOMA
     Dosage: 150 MG, ONCE DAILY [CYCLE 1 (CYCLE 28 DAYS), ON DAYS 1-5, 8-12 AND 15-26]
     Route: 048
     Dates: start: 20060613
  2. ERLOTINIB [Suspect]
     Active Substance: ERLOTINIB
     Dosage: 150 MG, ONCE DAILY [CYCLE 2 (28 DAYS), ON DAYS 1-5, 8-12 + 15-26, MOST RECENT DOSE ON 17-SEP-2006]
     Route: 048
  3. GEMCITABINE [Suspect]
     Active Substance: GEMCITABINE\GEMCITABINE HYDROCHLORIDE
     Dosage: 1000 MG/M2, CYCLIC [CYCLE 2 (CYCLE 28 DAYS), IV OVER 30 MINUTES ON DAYS 1, 8 AND 15]
     Route: 042
  4. BEVACIZUMAB [Suspect]
     Active Substance: BEVACIZUMAB
     Dosage: 10 MG/KG, CYCLIC (OVER 30-90 MIN. ON DAYS 1 AND 15), MOST RECENT DOSE ON 06-SEP--2006
     Route: 042
  5. BEVACIZUMAB [Suspect]
     Active Substance: BEVACIZUMAB
     Indication: PANCREATIC CARCINOMA
     Dosage: 10 MG/KG, CYCLIC (OVER 60-90 MINUTES ON DAYS 1 AND 15)
     Route: 042
     Dates: start: 20060613
  6. LOVENOX [Suspect]
     Active Substance: ENOXAPARIN SODIUM
     Indication: PRODUCT USED FOR UNKNOWN INDICATION
     Dosage: UNK UNK, UNKNOWN FREQ.
     Route: 065
  7. GEMCITABINE [Suspect]
     Active Substance: GEMCITABINE\GEMCITABINE HYDROCHLORIDE
     Indication: PANCREATIC CARCINOMA
     Dosage: 1000 MG/M2, CYCLIC [CYCLE 1 (CYCLE 28 DAYS), IV OVER 30 MINUTES ON DAYS 1, 8 AND 15]
     Route: 042
     Dates: start: 20060613

REACTIONS (1)
  - Intra-abdominal haemorrhage [Unknown]

NARRATIVE: CASE EVENT DATE: 20060920
